FAERS Safety Report 6822055-7 (Version None)
Quarter: 2010Q3

REPORT INFORMATION
  Report Type: 
  Country: None (occurrence: None)
  Receive Date: 20100706
  Receipt Date: 20100622
  Transmission Date: 20110219
  Serious: Yes (Hospitalization)
  Sender: FDA-Public Use
  Company Number: 1000013233

PATIENT
  Age: 99 Year
  Sex: Female

DRUGS (8)
  1. MEMANTINE [Suspect]
     Indication: DEMENTIA ALZHEIMER'S TYPE
     Dosage: 20 MG, ORAL
     Route: 048
     Dates: start: 20060101, end: 20100407
  2. MEMANTINE [Suspect]
     Indication: DEMENTIA ALZHEIMER'S TYPE
     Dosage: 20MG (4 IN 1D), ORAL
     Route: 048
     Dates: start: 20100410
  3. SEROQUEL [Concomitant]
  4. SINEMET [Concomitant]
  5. ADIRO [Concomitant]
  6. ACETYLCYSTEINE [Concomitant]
  7. ATARAX [Suspect]
     Indication: SNEEZING
     Dates: start: 20100404, end: 20100407
  8. HALOPERIDOL [Concomitant]
     Indication: SNEEZING
     Dates: start: 20100404, end: 20100407

REACTIONS (5)
  - AGITATION [None]
  - DRUG TOXICITY [None]
  - FALL [None]
  - MUSCULOSKELETAL STIFFNESS [None]
  - SNEEZING [None]
